FAERS Safety Report 8613565-0 (Version None)
Quarter: 2012Q3

REPORT INFORMATION
  Report Type: 
  Country: None (occurrence: None)
  Receive Date: 20120823
  Receipt Date: 20120808
  Transmission Date: 20120928
  Serious: Yes (Hospitalization)
  Sender: FDA-Public Use
  Company Number: US-009507513-1208USA006209

PATIENT

DRUGS (13)
  1. NOXAFIL [Interacting]
     Dosage: 1500 MG QD
     Route: 050
  2. AMPHOTERICIN B (+) L-(ALPHA)-DIMYRISTOYLPHOSPHATIDYLCHOLINE (+) L-(ALP [Concomitant]
     Dosage: UNK
  3. AMPHOTERICIN B (+) L-(ALPHA)-DIMYRISTOYLPHOSPHATIDYLCHOLINE (+) L-(ALP [Concomitant]
     Dosage: UNK
  4. PANTOPRAZOLE [Interacting]
  5. AMPHOTERICIN B (+) L-(ALPHA)-DIMYRISTOYLPHOSPHATIDYLCHOLINE (+) L-(ALP [Concomitant]
     Dosage: UNK
  6. AMPHOTERICIN B [Concomitant]
     Dosage: UNK
  7. NOXAFIL [Suspect]
     Indication: ZYGOMYCOSIS
     Dosage: 200 MG, Q4H
     Route: 050
  8. MICAFUNGIN [Concomitant]
     Indication: PROPHYLAXIS
     Dosage: UNK
  9. AMPHOTERICIN B (+) L-(ALPHA)-DIMYRISTOYLPHOSPHATIDYLCHOLINE (+) L-(ALP [Concomitant]
     Dosage: UNK
  10. FAMOTIDINE [Interacting]
  11. SUCRALFATE [Interacting]
  12. NOXAFIL [Interacting]
     Dosage: 120-300 MG/KG/DAY
     Route: 050
  13. NOXAFIL [Interacting]
     Dosage: 3000 MG/KG/DAY
     Route: 050

REACTIONS (3)
  - MALABSORPTION [None]
  - OVERDOSE [None]
  - DRUG INTERACTION [None]
